FAERS Safety Report 4285899-4 (Version None)
Quarter: 2004Q1

REPORT INFORMATION
  Report Type: 
  Country: None (occurrence: None)
  Receive Date: 20040203
  Receipt Date: 20040122
  Transmission Date: 20041129
  Serious: Yes (Other)
  Sender: FDA-Public Use
  Company Number: GBWYE534626JAN04

PATIENT
  Age: 56 Year
  Sex: Female

DRUGS (3)
  1. EFFEXOR [Suspect]
     Indication: DEPRESSION
     Dosage: 1 TABLET 1X PER 1 DAY
     Route: 048
     Dates: start: 20020916, end: 20021114
  2. FLUCLOXACILLIN (FLUCLOXACILLIN) [Concomitant]
  3. DICLOFENAC SODIUM [Concomitant]

REACTIONS (1)
  - ANGIONEUROTIC OEDEMA [None]
